FAERS Safety Report 20655063 (Version 1)
Quarter: 2022Q1

REPORT INFORMATION
  Report Type: Other
  Country: ES (occurrence: ES)
  Receive Date: 20220330
  Receipt Date: 20220330
  Transmission Date: 20220423
  Serious: Yes (Other)
  Sender: FDA-Public Use
  Company Number: ES-CELLTRION HEALTHCARE HUNGARY KFT-2022ES003026

PATIENT

DRUGS (7)
  1. RITUXIMAB [Suspect]
     Active Substance: RITUXIMAB
     Indication: Nephrotic syndrome
     Dosage: 375 MG/M2(2 CYCLES; TOTAL DOSE: 1500 MG/M2)
     Route: 042
  2. PREDNISONE [Suspect]
     Active Substance: PREDNISONE
     Indication: Nephrotic syndrome
     Dosage: 40 MG/M2, EVERY 48H
     Route: 065
  3. CYCLOSPORINE [Concomitant]
     Active Substance: CYCLOSPORINE
     Indication: Immunosuppressant drug therapy
     Dosage: 4.57 MG/M2
  4. DEXCHLORPHENIRAMINE [Concomitant]
     Active Substance: DEXCHLORPHENIRAMINE
     Indication: Premedication
     Dosage: 0.1 MG/KG, GIVEN 30-60 MIN BEFORE DRUG ADMINISTRATION
     Route: 048
  5. HYDROCORTISONE [Concomitant]
     Active Substance: HYDROCORTISONE
     Dosage: 4 MG/KG
     Route: 042
  6. METHYLPREDNISOLONE [Concomitant]
     Active Substance: METHYLPREDNISOLONE
     Dosage: 1-1.5 MG/KG
     Route: 042
  7. ACETAMINOPHEN [Concomitant]
     Active Substance: ACETAMINOPHEN
     Indication: Premedication
     Dosage: 15 MG/KG, GIVEN 30-60 MIN BEFORE DRUG ADMINISTRATION
     Route: 048

REACTIONS (4)
  - Off label use [Unknown]
  - Disease recurrence [Unknown]
  - Nephrotic syndrome [Unknown]
  - Drug effective for unapproved indication [Unknown]
